FAERS Safety Report 9543438 (Version 1)
Quarter: 2013Q3

REPORT INFORMATION
  Report Type: Spontaneous
  Country: US (occurrence: US)
  Receive Date: 20130923
  Receipt Date: 20130923
  Transmission Date: 20140515
  Serious: Yes (Other)
  Sender: FDA-Public Use
  Company Number: US-PFIZER INC-2013271820

PATIENT
  Age: 46 Year
  Sex: Female
  Weight: 81.63 kg

DRUGS (16)
  1. XANAX [Suspect]
     Indication: ANXIETY
     Dosage: UNK, DAILY
  2. XANAX [Suspect]
     Indication: PANIC ATTACK
     Dosage: UNK, 3X/DAY
  3. ROBINUL [Suspect]
     Indication: IRRITABLE BOWEL SYNDROME
     Dosage: 2 MG (1MG TWO TABLETS), DAILY
     Dates: start: 2013, end: 2013
  4. ROBINUL [Suspect]
     Indication: CROHN^S DISEASE
     Dosage: 3 MG (1MG THREE TABLETS), DAILY
     Dates: start: 2013, end: 201309
  5. ROBINUL [Suspect]
     Indication: ABDOMINAL PAIN UPPER
  6. ROBINUL [Suspect]
     Indication: NAUSEA
  7. PRILOSEC [Suspect]
     Indication: IRRITABLE BOWEL SYNDROME
     Dosage: 40 MG (40MG ONE TABLET), DAILY
  8. PRILOSEC [Suspect]
     Indication: CROHN^S DISEASE
     Dosage: 80 MG (40MG TWO TABLET), DAILY
     Dates: end: 201309
  9. PRILOSEC [Suspect]
     Indication: ABDOMINAL PAIN UPPER
  10. PRILOSEC [Suspect]
     Indication: NAUSEA
  11. PENTASA [Suspect]
     Indication: IRRITABLE BOWEL SYNDROME
     Dosage: 1000 MG (500MG TWO TABLETS), 4X/DAY
  12. PENTASA [Suspect]
     Indication: CROHN^S DISEASE
     Dosage: UNK
  13. PENTASA [Suspect]
     Indication: ABDOMINAL PAIN UPPER
  14. PENTASA [Suspect]
     Indication: NAUSEA
  15. ZOFRAN [Suspect]
     Indication: NAUSEA
     Dosage: 4 MG, 4X/DAY
  16. ZOFRAN [Suspect]
     Dosage: UNK

REACTIONS (12)
  - Drug withdrawal syndrome [Not Recovered/Not Resolved]
  - Aphagia [Not Recovered/Not Resolved]
  - Chills [Not Recovered/Not Resolved]
  - Tremor [Not Recovered/Not Resolved]
  - Crying [Not Recovered/Not Resolved]
  - Vomiting [Not Recovered/Not Resolved]
  - Pallor [Not Recovered/Not Resolved]
  - Influenza like illness [Not Recovered/Not Resolved]
  - Headache [Not Recovered/Not Resolved]
  - Hyperhidrosis [Not Recovered/Not Resolved]
  - Panic attack [Not Recovered/Not Resolved]
  - Anxiety [Not Recovered/Not Resolved]
